FAERS Safety Report 8790692 (Version 1)
Quarter: 2012Q4

REPORT INFORMATION
  Report Type: Spontaneous
  Country: US (occurrence: None)
  Receive Date: 20120912
  Receipt Date: 20120912
  Transmission Date: 20130627
  Serious: Yes (Hospitalization)
  Sender: FDA-Public Use
  Company Number: None

PATIENT
  Age: 92 Year
  Sex: Male
  Weight: 71.5 kg

DRUGS (2)
  1. AMOXICILLIN [Suspect]
     Indication: UPPER RESPIRATORY TRACT INFECTION
     Route: 048
     Dates: start: 20111123, end: 20111203
  2. AMOXICILLIN [Suspect]
     Indication: COPD EXACERBATION
     Route: 048
     Dates: start: 20111123, end: 20111203

REACTIONS (2)
  - Fall [None]
  - Clostridium test positive [None]
